FAERS Safety Report 23748583 (Version 1)
Quarter: 2024Q2

REPORT INFORMATION
  Report Type: Report from Study
  Country: IT (occurrence: IT)
  Receive Date: 20240416
  Receipt Date: 20240416
  Transmission Date: 20240716
  Serious: Yes (Death, Other)
  Sender: FDA-Public Use
  Company Number: IT-SUN PHARMACEUTICAL INDUSTRIES LTD-2024R1-441416

PATIENT
  Sex: Female

DRUGS (4)
  1. CARBOPLATIN [Suspect]
     Active Substance: CARBOPLATIN
     Indication: Ovarian cancer
     Dosage: UNK (AREA UNDER THE CURVE 6 DURING CYCLES 1 TO 6,REPEATED EVERY 3 WEEKS)
     Route: 065
  2. PACLITAXEL [Suspect]
     Active Substance: PACLITAXEL
     Indication: Ovarian cancer
     Dosage: UNK (175MG/M2,CYCLES 1 TO 6,REPEATED EVERY 3 WEEKS)
     Route: 065
  3. ATEZOLIZUMAB [Suspect]
     Active Substance: ATEZOLIZUMAB
     Indication: Ovarian cancer
     Dosage: UNK (1200 MG ON DAY 1 OF CYCLES 1 TO 22)
     Route: 065
  4. BEVACIZUMAB [Suspect]
     Active Substance: BEVACIZUMAB
     Indication: Ovarian cancer
     Dosage: UNK  (15 MG/KG DURING CYCLES 2 TO 22,REPEATED EVERY 3 WEEKS)
     Route: 065

REACTIONS (1)
  - Death [Fatal]
